FAERS Safety Report 14668948 (Version 1)
Quarter: 2018Q1

REPORT INFORMATION
  Report Type: Spontaneous
  Country: FR (occurrence: FR)
  Receive Date: 20180322
  Receipt Date: 20180322
  Transmission Date: 20180509
  Serious: Yes (Other)
  Sender: FDA-Public Use
  Company Number: FR-009507513-1801FRA002457

PATIENT
  Age: 70 Year
  Sex: Female
  Weight: 54 kg

DRUGS (1)
  1. ADROVANCE [Suspect]
     Active Substance: ALENDRONATE SODIUM\CHOLECALCIFEROL
     Dosage: UNK
     Route: 048
     Dates: start: 20170913, end: 20171205

REACTIONS (6)
  - Pain in jaw [Unknown]
  - Groin pain [Unknown]
  - Inflammatory pain [Unknown]
  - Arthralgia [Unknown]
  - Polymyalgia rheumatica [Unknown]
  - Gait inability [Unknown]

NARRATIVE: CASE EVENT DATE: 20170913
